FAERS Safety Report 16984025 (Version 1)
Quarter: 2019Q4

REPORT INFORMATION
  Report Type: Spontaneous
  Country: US (occurrence: US)
  Receive Date: 20190917
  Receipt Date: 20190917
  Transmission Date: 20200122
  Serious: No
  Sender: FDA-Public Use
  Company Number: None

PATIENT

DRUGS (1)
  1. TALTZ [Suspect]
     Active Substance: IXEKIZUMAB
     Route: 058
     Dates: start: 201901, end: 20190901

REACTIONS (2)
  - Drug ineffective [None]
  - Injection site pain [None]

NARRATIVE: CASE EVENT DATE: 20190901
